FAERS Safety Report 8431452-8 (Version None)
Quarter: 2012Q2

REPORT INFORMATION
  Report Type: 
  Country: None (occurrence: None)
  Receive Date: 20120607
  Receipt Date: 20120607
  Transmission Date: 20120825
  Serious: Yes (Disabling, Other)
  Sender: FDA-Public Use
  Company Number: None

PATIENT
  Age: 48 Year
  Sex: Female
  Weight: 95.2554 kg

DRUGS (1)
  1. CELEXA [Suspect]
     Indication: DEPRESSION
     Dosage: 40MG 1 TIMES DAILY
     Dates: start: 19960101, end: 20120101

REACTIONS (10)
  - NERVOUSNESS [None]
  - SLEEP DISORDER [None]
  - ANXIETY [None]
  - ELECTRIC SHOCK [None]
  - CRYING [None]
  - MUSCLE TWITCHING [None]
  - PANIC ATTACK [None]
  - TREMOR [None]
  - HEADACHE [None]
  - VISUAL IMPAIRMENT [None]
